FAERS Safety Report 13757864 (Version 1)
Quarter: 2017Q3

REPORT INFORMATION
  Report Type: Spontaneous
  Country: US (occurrence: US)
  Receive Date: 20170717
  Receipt Date: 20170717
  Transmission Date: 20171127
  Serious: Yes (Hospitalization)
  Sender: FDA-Public Use
  Company Number: US-BIOGEN-2017BI00431814

PATIENT
  Sex: Male

DRUGS (1)
  1. TYSABRI [Suspect]
     Active Substance: NATALIZUMAB
     Indication: MULTIPLE SCLEROSIS
     Route: 065
     Dates: start: 20160502

REACTIONS (5)
  - Multiple sclerosis relapse [Unknown]
  - Balance disorder [Unknown]
  - Fall [Recovered/Resolved]
  - Gait disturbance [Unknown]
  - Visual impairment [Unknown]
